FAERS Safety Report 17425150 (Version 8)
Quarter: 2022Q1

REPORT INFORMATION
  Report Type: Spontaneous
  Country: FR (occurrence: FR)
  Receive Date: 20200218
  Receipt Date: 20220323
  Transmission Date: 20220424
  Serious: Yes (Hospitalization, Other)
  Sender: FDA-Public Use
  Company Number: FR-ADVANZ PHARMA-202002000774

PATIENT

DRUGS (12)
  1. HYDROXYCHLOROQUINE SULFATE [Suspect]
     Active Substance: HYDROXYCHLOROQUINE SULFATE
     Indication: Arthralgia
     Dosage: 2 DOSAGE FORM, QD
     Route: 065
     Dates: start: 20150724, end: 20150820
  2. HYDROXYCHLOROQUINE SULFATE [Suspect]
     Active Substance: HYDROXYCHLOROQUINE SULFATE
     Indication: Arthritis
     Dosage: 2 DOSAGE FORM, QD
     Route: 065
     Dates: start: 201508, end: 20150903
  3. METHOTREXATE [Suspect]
     Active Substance: METHOTREXATE
     Indication: Hypertension
     Dosage: 15 MG, WEEKLY
     Route: 065
     Dates: start: 201606, end: 2017
  4. METHOTREXATE [Suspect]
     Active Substance: METHOTREXATE
     Dosage: 10 MG, WEEKLY
     Route: 065
     Dates: start: 201710
  5. METHOTREXATE [Suspect]
     Active Substance: METHOTREXATE
     Dosage: 5 MG, WEEKLY
     Route: 065
     Dates: end: 201903
  6. PREDNISOLONE [Suspect]
     Active Substance: PREDNISOLONE
     Indication: Product used for unknown indication
     Dosage: UNK
     Route: 065
  7. LEVOTHYROXINE [Concomitant]
     Active Substance: LEVOTHYROXINE
     Indication: Thyroid disorder
     Dosage: UNK
  8. ACUPAN [Concomitant]
     Active Substance: NEFOPAM HYDROCHLORIDE
     Dosage: UNK
  9. AUGMENTIN [Concomitant]
     Active Substance: AMOXICILLIN\CLAVULANATE POTASSIUM
     Dosage: UNK
  10. HUMIRA [Concomitant]
     Active Substance: ADALIMUMAB
     Dosage: UNK
     Dates: start: 201903, end: 201908
  11. TALTZ [Concomitant]
     Active Substance: IXEKIZUMAB
     Dosage: UNK
     Dates: start: 201908
  12. AMOXICILLIN\CLAVULANIC ACID [Concomitant]
     Active Substance: AMOXICILLIN\CLAVULANIC ACID
     Dosage: UNK

REACTIONS (38)
  - Toxic skin eruption [Unknown]
  - Cholestasis [Unknown]
  - Staphylococcal bacteraemia [Unknown]
  - Dermatitis psoriasiform [Unknown]
  - Cell death [Unknown]
  - Skin lesion [Unknown]
  - Rheumatoid arthritis [Unknown]
  - Epidermal necrosis [Unknown]
  - Skin exfoliation [Unknown]
  - Rash pustular [Unknown]
  - Skin exfoliation [Unknown]
  - Pustule [Unknown]
  - Toxic epidermal necrolysis [Unknown]
  - Acute generalised exanthematous pustulosis [Unknown]
  - Pyrexia [Unknown]
  - Rash [Unknown]
  - Dyspnoea [Unknown]
  - Dermatitis exfoliative generalised [Unknown]
  - Pustular psoriasis [Unknown]
  - Rash pruritic [Unknown]
  - Eosinophil count increased [Unknown]
  - Rash [Unknown]
  - Rash [Unknown]
  - Therapy cessation [Unknown]
  - Enthesopathy [Unknown]
  - Tenosynovitis [Unknown]
  - Psoriasis [Unknown]
  - Arthralgia [Unknown]
  - Back pain [Unknown]
  - Skin reaction [Unknown]
  - Anxiety [Unknown]
  - Condition aggravated [Unknown]
  - Pallor [Unknown]
  - Erythema [Unknown]
  - Diffuse alopecia [Unknown]
  - Rash erythematous [Unknown]
  - Rash pustular [Unknown]
  - Incorrect dose administered [Unknown]

NARRATIVE: CASE EVENT DATE: 20150820
